FAERS Safety Report 17577968 (Version 7)
Quarter: 2021Q3

REPORT INFORMATION
  Report Type: Spontaneous
  Country: DE (occurrence: DE)
  Receive Date: 20200324
  Receipt Date: 20210726
  Transmission Date: 20211014
  Serious: Yes (Other)
  Sender: FDA-Public Use
  Company Number: DE-GUERBET-DE-20200039

PATIENT
  Age: 33 Year
  Sex: Female
  Weight: 72 kg

DRUGS (8)
  1. DOTAREM [Suspect]
     Active Substance: GADOTERATE MEGLUMINE
     Indication: MAGNETIC RESONANCE IMAGING HEAD
     Route: 042
     Dates: start: 20200306, end: 20200306
  2. DOTAREM [Suspect]
     Active Substance: GADOTERATE MEGLUMINE
     Route: 042
     Dates: start: 20110210, end: 20110210
  3. DOTAREM [Suspect]
     Active Substance: GADOTERATE MEGLUMINE
     Route: 065
     Dates: start: 20121016, end: 20121016
  4. DOTAREM [Suspect]
     Active Substance: GADOTERATE MEGLUMINE
     Route: 065
     Dates: start: 20180101, end: 20180101
  5. DOTAREM [Suspect]
     Active Substance: GADOTERATE MEGLUMINE
     Indication: HAEMANGIOMA
     Dosage: UNKNOWN
     Route: 042
     Dates: start: 20190306, end: 20190306
  6. DOTAREM [Suspect]
     Active Substance: GADOTERATE MEGLUMINE
     Route: 065
     Dates: start: 20150929, end: 20150929
  7. DOTAREM [Suspect]
     Active Substance: GADOTERATE MEGLUMINE
     Indication: HEADACHE
     Route: 065
     Dates: start: 20190306, end: 20190306
  8. DOTAREM [Suspect]
     Active Substance: GADOTERATE MEGLUMINE
     Route: 065
     Dates: start: 20141006

REACTIONS (27)
  - Muscle spasms [Unknown]
  - Rash [Unknown]
  - Pruritus [Not Recovered/Not Resolved]
  - Dyspnoea [Unknown]
  - Toothache [Unknown]
  - Pruritus [Unknown]
  - Skin reaction [Unknown]
  - Disturbance in attention [Not Recovered/Not Resolved]
  - Nasopharyngitis [Unknown]
  - Paraesthesia [Unknown]
  - Muscular weakness [Unknown]
  - Adverse reaction [Unknown]
  - Myalgia [Unknown]
  - Limb discomfort [Not Recovered/Not Resolved]
  - Abdominal discomfort [Unknown]
  - Diarrhoea [Unknown]
  - Hypomenorrhoea [Unknown]
  - Acute sinusitis [Unknown]
  - Skin burning sensation [Not Recovered/Not Resolved]
  - Dizziness [Unknown]
  - Fatigue [Unknown]
  - Arthralgia [Not Recovered/Not Resolved]
  - Pain in extremity [Unknown]
  - Gadolinium deposition disease [Unknown]
  - Product residue present [Unknown]
  - Abdominal pain [Not Recovered/Not Resolved]
  - Spinal disorder [Unknown]

NARRATIVE: CASE EVENT DATE: 201104
